FAERS Safety Report 15083988 (Version 4)
Quarter: 2019Q1

REPORT INFORMATION
  Report Type: Spontaneous
  Country: US (occurrence: US)
  Receive Date: 20180628
  Receipt Date: 20190116
  Transmission Date: 20190417
  Serious: Yes (Disabling)
  Sender: FDA-Public Use
  Company Number: US-OTSUKA-2018_015751

PATIENT
  Sex: Female

DRUGS (4)
  1. ABILIFY [Suspect]
     Active Substance: ARIPIPRAZOLE
     Indication: BIPOLAR DISORDER
     Dosage: 2 MG, QD
     Route: 065
     Dates: start: 200301
  2. ABILIFY [Suspect]
     Active Substance: ARIPIPRAZOLE
     Indication: ATTENTION DEFICIT/HYPERACTIVITY DISORDER
  3. ABILIFY [Suspect]
     Active Substance: ARIPIPRAZOLE
     Indication: MAJOR DEPRESSION
     Dosage: 10 MG, QD
     Route: 065
     Dates: end: 201801
  4. ABILIFY [Suspect]
     Active Substance: ARIPIPRAZOLE
     Indication: ANXIETY

REACTIONS (15)
  - Attention deficit/hyperactivity disorder [Recovered/Resolved]
  - Homeless [Unknown]
  - Compulsive shopping [Recovered/Resolved]
  - Anxiety [Unknown]
  - Disability [Unknown]
  - Emotional distress [Unknown]
  - Gambling disorder [Recovered/Resolved]
  - Condition aggravated [Unknown]
  - Pain [Unknown]
  - Injury [Unknown]
  - Economic problem [Unknown]
  - Obsessive-compulsive disorder [Recovered/Resolved]
  - Anhedonia [Unknown]
  - Divorced [Unknown]
  - Product use in unapproved indication [Unknown]

NARRATIVE: CASE EVENT DATE: 2003
